FAERS Safety Report 18980282 (Version 4)
Quarter: 2021Q3

REPORT INFORMATION
  Report Type: Spontaneous
  Country: IN (occurrence: IN)
  Receive Date: 20210308
  Receipt Date: 20210902
  Transmission Date: 20211014
  Serious: Yes (Death, Other)
  Sender: FDA-Public Use
  Company Number: IN-PFIZER INC-2018010491

PATIENT
  Age: 59 Year
  Sex: Female
  Weight: 59.1 kg

DRUGS (10)
  1. FASLODEX [Suspect]
     Active Substance: FULVESTRANT
     Dosage: 2 DOSES ON EACH BUTTUCK
     Route: 030
  2. EVEROLIMUS. [Concomitant]
     Active Substance: EVEROLIMUS
     Dosage: 10 MG
     Dates: start: 20140403, end: 20170411
  3. ANASTRAZOLE DENK [Concomitant]
     Active Substance: ANASTROZOLE
     Dosage: 1 MG
  4. EXEMESTANE. [Concomitant]
     Active Substance: EXEMESTANE
     Dosage: 25 MG
     Dates: start: 20140403, end: 20170411
  5. LETROZOLE. [Concomitant]
     Active Substance: LETROZOLE
     Dosage: 2.5 MG
     Dates: start: 201309, end: 20140401
  6. ZOLEDRONIC ACID [Concomitant]
     Active Substance: ZOLEDRONIC ACID
     Dosage: UNK
     Dates: start: 20140403, end: 20170411
  7. PALBACE [Suspect]
     Active Substance: PALBOCICLIB
     Indication: BREAST CANCER METASTATIC
     Dosage: 125 MG, 1X/DAY
     Route: 048
     Dates: start: 20170429
  8. PALBACE [Suspect]
     Active Substance: PALBOCICLIB
     Dosage: 100 MG
  9. PALBACE [Suspect]
     Active Substance: PALBOCICLIB
     Dosage: 125 MG, CYCLIC (3 WEEKS ON 1 WEEK OFF X 2 MONTHS)
     Route: 048
  10. ZOLEDRONIC ACID [Concomitant]
     Active Substance: ZOLEDRONIC ACID
     Dosage: UNK
     Dates: start: 201309, end: 20140401

REACTIONS (2)
  - Death [Fatal]
  - COVID-19 [Unknown]
